FAERS Safety Report 4609438-0 (Version None)
Quarter: 2005Q1

REPORT INFORMATION
  Report Type: 
  Country: None (occurrence: None)
  Receive Date: 20050314
  Receipt Date: 20050301
  Transmission Date: 20050727
  Serious: Yes (Hospitalization)
  Sender: FDA-Public Use
  Company Number: 2005039340

PATIENT
  Age: 53 Year
  Sex: Female

DRUGS (5)
  1. TOLTERODINE TARTRATE [Suspect]
     Indication: HYPERTONIC BLADDER
     Dosage: 4 MG (1 IN 1 D) ORAL
     Route: 048
     Dates: start: 20040507, end: 20040524
  2. OFLOXACIN [Concomitant]
  3. TRAZODONE HCL [Concomitant]
  4. ESCITALOPRAM (ESCITALOPRAM) [Concomitant]
  5. ALPRAZOLAM [Concomitant]

REACTIONS (3)
  - ERYTHEMA [None]
  - RASH PAPULAR [None]
  - URINARY TRACT INFECTION [None]
